FAERS Safety Report 9280142 (Version 2)
Quarter: 2013Q2

REPORT INFORMATION
  Report Type: Spontaneous
  Country: US (occurrence: US)
  Receive Date: 20130509
  Receipt Date: 20130524
  Transmission Date: 20140414
  Serious: Yes (Other)
  Sender: FDA-Public Use
  Company Number: US-AMGEN-USASP2013031548

PATIENT
  Age: 48 Year
  Sex: Male

DRUGS (1)
  1. NPLATE [Suspect]
     Indication: PRODUCT USED FOR UNKNOWN INDICATION
     Dosage: 1045 MUG, UNK
     Dates: start: 201302

REACTIONS (2)
  - Platelet count decreased [Not Recovered/Not Resolved]
  - Therapeutic response decreased [Unknown]
